FAERS Safety Report 11653178 (Version 2)
Quarter: 2015Q4

REPORT INFORMATION
  Report Type: Report from Study
  Country: FR (occurrence: FR)
  Receive Date: 20151022
  Receipt Date: 20151221
  Transmission Date: 20160304
  Serious: Yes (Hospitalization, Other)
  Sender: FDA-Public Use
  Company Number: FR-BRISTOL-MYERS SQUIBB COMPANY-BMS-2015-055005

PATIENT
  Age: 75 Year
  Sex: Male
  Weight: 83 kg

DRUGS (2)
  1. NIVOLUMAB [Suspect]
     Active Substance: NIVOLUMAB
     Indication: NON-SMALL CELL LUNG CANCER
     Dosage: 250 MG, UNK
     Route: 042
     Dates: start: 20150722, end: 20150805
  2. NIVOLUMAB [Suspect]
     Active Substance: NIVOLUMAB
     Indication: LUNG ADENOCARCINOMA

REACTIONS (9)
  - Dehydration [Recovered/Resolved]
  - Prerenal failure [Recovered/Resolved]
  - Diarrhoea [Recovered/Resolved]
  - Neutrophil count abnormal [Unknown]
  - Hyperthyroidism [Recovering/Resolving]
  - Colitis [Recovered/Resolved]
  - Thyroiditis [Recovering/Resolving]
  - Leukocytosis [Unknown]
  - Eosinophilia [Unknown]

NARRATIVE: CASE EVENT DATE: 20150804
